FAERS Safety Report 10050202 (Version 1)
Quarter: 2014Q2

REPORT INFORMATION
  Report Type: Spontaneous
  Country: BR (occurrence: BR)
  Receive Date: 20140401
  Receipt Date: 20140401
  Transmission Date: 20141212
  Serious: Yes (Hospitalization)
  Sender: FDA-Public Use
  Company Number: BR-PFIZER INC-2014086839

PATIENT
  Age: 75 Year
  Sex: Male
  Weight: 74 kg

DRUGS (3)
  1. CITALOR [Suspect]
     Dosage: 10 MG, UNK
     Route: 048
     Dates: start: 1984
  2. ASPIRINA [Concomitant]
  3. CARDIZEM [Concomitant]

REACTIONS (1)
  - Angiopathy [Unknown]
